FAERS Safety Report 23464878 (Version 1)
Quarter: 2024Q1

REPORT INFORMATION
  Report Type: Report from Study
  Country: CN (occurrence: CN)
  Receive Date: 20240201
  Receipt Date: 20240201
  Transmission Date: 20240410
  Serious: Yes (Other)
  Sender: FDA-Public Use
  Company Number: CN-JNJFOC-20240160856

PATIENT
  Sex: Male

DRUGS (4)
  1. ERLEADA [Suspect]
     Active Substance: APALUTAMIDE
     Indication: Hormone-dependent prostate cancer
     Route: 048
  2. ERLEADA [Suspect]
     Active Substance: APALUTAMIDE
     Route: 048
  3. GOSERELIN [Suspect]
     Active Substance: GOSERELIN
     Indication: Hormone-dependent prostate cancer
     Dosage: INJECTED SUBCUTANEOUSLY INTO ABDOMINAL WALL EVERY 12 WEEKS.
     Route: 058
  4. PREDNISONE [Concomitant]
     Active Substance: PREDNISONE
     Indication: Palmar-plantar erythrodysaesthesia syndrome

REACTIONS (33)
  - Metastases to spine [Unknown]
  - Erythema multiforme [Recovering/Resolving]
  - Pemphigoid [Recovering/Resolving]
  - Hypokalaemia [Recovering/Resolving]
  - Dermatitis acneiform [Unknown]
  - Osteoporotic fracture [Recovering/Resolving]
  - Rash [Recovering/Resolving]
  - Rash maculo-papular [Recovering/Resolving]
  - Rash [Recovering/Resolving]
  - Urticaria [Recovering/Resolving]
  - Rash pruritic [Recovering/Resolving]
  - Rash macular [Recovering/Resolving]
  - Conjunctivitis [Recovering/Resolving]
  - Rash papular [Recovering/Resolving]
  - Skin exfoliation [Recovering/Resolving]
  - Stomatitis [Recovering/Resolving]
  - Genital rash [Recovering/Resolving]
  - Rash erythematous [Recovering/Resolving]
  - Drug eruption [Recovering/Resolving]
  - Mouth ulceration [Recovering/Resolving]
  - Rash pustular [Recovering/Resolving]
  - Blister [Recovering/Resolving]
  - Papule [Recovering/Resolving]
  - Skin erosion [Recovering/Resolving]
  - Rash vesicular [Recovering/Resolving]
  - Hypertension [Recovering/Resolving]
  - Fall [Recovering/Resolving]
  - Fatigue [Recovering/Resolving]
  - Asthenia [Recovering/Resolving]
  - Oedema peripheral [Recovering/Resolving]
  - Palmar-plantar erythrodysaesthesia syndrome [Recovering/Resolving]
  - Rash [Unknown]
  - Incorrect dose administered [Unknown]
